FAERS Safety Report 8308998-6 (Version None)
Quarter: 2012Q2

REPORT INFORMATION
  Report Type: 
  Country: None (occurrence: None)
  Receive Date: 20120424
  Receipt Date: 20120412
  Transmission Date: 20120825
  Serious: Yes (Other)
  Sender: FDA-Public Use
  Company Number: GB-ROCHE-1020088

PATIENT
  Sex: Male

DRUGS (4)
  1. LUCENTIS [Suspect]
     Route: 050
     Dates: start: 20110929
  2. OMEPRAZOLE [Concomitant]
  3. LUCENTIS [Suspect]
     Indication: CHOROIDAL NEOVASCULARISATION
     Route: 050
  4. PREDNISOLONE [Concomitant]

REACTIONS (3)
  - CONJUNCTIVITIS [None]
  - HIATUS HERNIA [None]
  - POLYMYALGIA RHEUMATICA [None]
